FAERS Safety Report 26169212 (Version 1)
Quarter: 2025Q4

REPORT INFORMATION
  Report Type: Spontaneous
  Country: US (occurrence: None)
  Receive Date: 20251216
  Receipt Date: 20251216
  Transmission Date: 20260118
  Serious: Yes (Hospitalization)
  Sender: FDA-CTU
  Company Number: None

PATIENT
  Age: 69 Year
  Sex: Female
  Weight: 57.2 kg

DRUGS (4)
  1. YESCARTA [Suspect]
     Active Substance: AXICABTAGENE CILOLEUCEL
  2. YESCARTA [Concomitant]
     Active Substance: AXICABTAGENE CILOLEUCEL
  3. DEXAMETHASONE [Concomitant]
     Active Substance: DEXAMETHASONE
  4. DASATINIB [Concomitant]
     Active Substance: DASATINIB

REACTIONS (2)
  - Neutropenia [None]
  - Immune effector cell-associated neurotoxicity syndrome [None]

NARRATIVE: CASE EVENT DATE: 20250918
